FAERS Safety Report 9472109 (Version 4)
Quarter: 2013Q4

REPORT INFORMATION
  Report Type: Spontaneous
  Country: US (occurrence: US)
  Receive Date: 20130823
  Receipt Date: 20131015
  Transmission Date: 20140711
  Serious: No
  Sender: FDA-Public Use
  Company Number: US-009507513-1308USA009248

PATIENT
  Age: 30 Year
  Sex: Female
  Weight: 69.84 kg

DRUGS (1)
  1. IMPLANON [Suspect]
     Indication: CONTRACEPTION
     Dosage: 1 ROD
     Route: 059
     Dates: start: 20130329, end: 20130924

REACTIONS (6)
  - Vaginal haemorrhage [Not Recovered/Not Resolved]
  - Medical device complication [Recovered/Resolved]
  - Device expulsion [Unknown]
  - Device difficult to use [Not Recovered/Not Resolved]
  - Device difficult to use [Recovered/Resolved]
  - Device dislocation [Recovered/Resolved]
